FAERS Safety Report 25769854 (Version 2)
Quarter: 2025Q4

REPORT INFORMATION
  Report Type: Spontaneous
  Country: JP (occurrence: JP)
  Receive Date: 20250907
  Receipt Date: 20251112
  Transmission Date: 20260117
  Serious: Yes (Other)
  Sender: MERCK SHARP & DOHME LLC
  Company Number: JP-009507513-2326511

PATIENT
  Age: 7 Decade
  Sex: Female

DRUGS (2)
  1. KEYTRUDA [Suspect]
     Active Substance: PEMBROLIZUMAB
     Indication: Ovarian cancer stage III
     Route: 065
  2. LENVIMA [Suspect]
     Active Substance: LENVATINIB
     Indication: Ovarian cancer stage III
     Dosage: STRENGTH: 10 MG
     Route: 048

REACTIONS (7)
  - Malignant neoplasm progression [Unknown]
  - Diarrhoea [Unknown]
  - Malaise [Unknown]
  - Product use issue [Unknown]
  - Therapy partial responder [Unknown]
  - Thrombocytopenia [Unknown]
  - Immune-mediated hypothyroidism [Unknown]
